FAERS Safety Report 12568664 (Version 1)
Quarter: 2016Q3

REPORT INFORMATION
  Report Type: Spontaneous
  Country: US (occurrence: US)
  Receive Date: 20160719
  Receipt Date: 20160719
  Transmission Date: 20161109
  Serious: No
  Sender: FDA-Public Use
  Company Number: PHEH2016US017739

PATIENT
  Sex: Male

DRUGS (1)
  1. JADENU [Suspect]
     Active Substance: DEFERASIROX
     Indication: APLASTIC ANAEMIA
     Route: 065

REACTIONS (2)
  - Platelet count decreased [Unknown]
  - Platelet adhesiveness decreased [Recovering/Resolving]
